FAERS Safety Report 8320545-1 (Version None)
Quarter: 2012Q2

REPORT INFORMATION
  Report Type: 
  Country: None (occurrence: None)
  Receive Date: 20120430
  Receipt Date: 20120423
  Transmission Date: 20120825
  Serious: Yes (Hospitalization)
  Sender: FDA-Public Use
  Company Number: JP-PFIZER INC-2011144673

PATIENT
  Age: 69 Year
  Sex: Male
  Weight: 61.5 kg

DRUGS (42)
  1. PURSENNID [Concomitant]
     Indication: CONSTIPATION
     Dosage: 24 MG, AS NEEDED
     Route: 048
     Dates: start: 20101103
  2. AMLODIPINE BESILATE [Concomitant]
     Dosage: 5 MG, 1X/DAY
     Route: 048
     Dates: start: 20110604, end: 20110604
  3. ZOMETA [Concomitant]
     Dosage: 4 MG, 1X/DAY
     Route: 042
     Dates: start: 20110606, end: 20110606
  4. AXITINIB [Suspect]
     Indication: METASTATIC RENAL CELL CARCINOMA
     Dosage: 5 MG, 2X/DAY
     Route: 048
     Dates: start: 20101116, end: 20110518
  5. BLINDED AXITINIB [Suspect]
     Indication: METASTATIC RENAL CELL CARCINOMA
     Dosage: 2 MG, 2X/DAY
     Dates: start: 20101214, end: 20110518
  6. BLINDED NO SUBJECT DRUG [Suspect]
     Indication: METASTATIC RENAL CELL CARCINOMA
     Dosage: 2 MG, 2X/DAY
     Dates: start: 20101214, end: 20110518
  7. HIRUDOID [Concomitant]
     Indication: PALMAR-PLANTAR ERYTHRODYSAESTHESIA SYNDROME
     Dosage: UNK
     Route: 003
     Dates: start: 20101118
  8. PRIMPERAN TAB [Concomitant]
     Indication: NAUSEA
     Dosage: 5 MG, 3X/DAY
     Route: 048
     Dates: start: 20110316
  9. LEVOFLOXACIN [Concomitant]
     Indication: PYREXIA
     Dosage: 500 MG, 1X/DAY
     Route: 048
     Dates: start: 20110611, end: 20110613
  10. PLACEBO [Suspect]
     Dosage: 2 MG, 2X/DAY
     Route: 048
     Dates: start: 20110705, end: 20110714
  11. AMLODIPINE BESILATE [Concomitant]
     Indication: HYPERTENSION
     Dosage: 5 MG, 1X/DAY
     Route: 048
     Dates: start: 20110509, end: 20110518
  12. SOLDEM 3A [Concomitant]
     Indication: NAUSEA
     Dosage: 500 ML, 2X/DAY
     Route: 042
     Dates: start: 20110524, end: 20110525
  13. BLINDED AXITINIB [Suspect]
     Dosage: 2 MG, 2X/DAY
     Dates: start: 20110604, end: 20110613
  14. BLINDED NO SUBJECT DRUG [Suspect]
     Dosage: 2 MG, 2X/DAY
     Dates: start: 20110604, end: 20110613
  15. MOBIC [Concomitant]
     Dosage: 20 MG, 1X/DAY
     Route: 048
     Dates: start: 20110526, end: 20110602
  16. PRIMPERAN TAB [Concomitant]
     Indication: VOMITING
     Dosage: 10 MG, 1X/DAY
     Route: 042
     Dates: start: 20110525, end: 20110525
  17. OXINORM [Concomitant]
     Indication: CANCER PAIN
     Dosage: 10 MG, AS NEEDED
     Route: 048
     Dates: start: 20110506
  18. VEEN D [Concomitant]
     Indication: VOMITING
     Dosage: 500 ML, 2X/DAY
     Route: 042
     Dates: start: 20110531, end: 20110602
  19. ACETAMINOPHEN [Concomitant]
     Indication: PYREXIA
     Dosage: 500 MG, 1X/DAY
     Route: 048
     Dates: start: 20110608, end: 20110608
  20. AXITINIB [Suspect]
     Dosage: 5 MG, 2X/DAY
     Route: 048
     Dates: start: 20110705, end: 20110715
  21. MAGNESIUM OXIDE [Concomitant]
     Indication: CONSTIPATION
     Dosage: 0.5 G, 3X/DAY
     Route: 048
     Dates: start: 20101103
  22. MOBIC [Concomitant]
     Dosage: 15 MG, 1X/DAY
     Route: 048
     Dates: start: 20110603, end: 20110612
  23. TELEMINSOFT [Concomitant]
     Indication: CONSTIPATION
     Dosage: 4 MG, AS NEEDED
     Route: 054
     Dates: start: 20101109
  24. VEEN-F [Concomitant]
     Indication: NAUSEA
     Dosage: 500 ML, 1X/DAY
     Route: 042
     Dates: start: 20110523, end: 20110523
  25. SOLDEM 3A [Concomitant]
     Indication: VOMITING
  26. LANSOPRAZOLE [Concomitant]
     Indication: GASTRITIS
     Dosage: 15 MG, 1X/DAY
     Route: 048
     Dates: start: 20101112
  27. SODIUM BICARBONATE [Concomitant]
     Indication: STOMATITIS
     Dosage: 2 G, 2X/DAY
     Dates: start: 20101123
  28. VEEN D [Concomitant]
     Indication: NAUSEA
     Dosage: 500 ML, 1X/DAY
     Route: 042
     Dates: start: 20110523, end: 20110524
  29. ACETAMINOPHEN [Concomitant]
     Dosage: 1000 MG, UNK
     Route: 048
     Dates: start: 20110609, end: 20110611
  30. BLINDED AXITINIB [Suspect]
     Dosage: 2 MG, 2X/DAY
     Route: 048
     Dates: start: 20110705, end: 20110714
  31. GASMOTIN [Concomitant]
     Indication: DECREASED APPETITE
     Dosage: 5 MG, 3X/DAY
     Route: 048
     Dates: start: 20110401
  32. OXYCONTIN [Concomitant]
     Indication: CANCER PAIN
     Dosage: 40 MG, 2X/DAY
     Route: 048
     Dates: start: 20110507
  33. ACETAMINOPHEN [Concomitant]
     Dosage: 2000 MG, UNK
     Route: 048
     Dates: start: 20110612
  34. AXITINIB [Suspect]
     Dosage: 5 MG, 2X/DAY
     Route: 048
     Dates: start: 20110604, end: 20110613
  35. PLACEBO [Suspect]
     Indication: METASTATIC RENAL CELL CARCINOMA
     Dosage: 2 MG, 2X/DAY
     Dates: start: 20101214, end: 20110518
  36. PLACEBO [Suspect]
     Dosage: 2 MG, 2X/DAY
     Dates: start: 20110604, end: 20110613
  37. BLINDED NO SUBJECT DRUG [Suspect]
     Dosage: 2 MG, 2X/DAY
     Route: 048
     Dates: start: 20110705, end: 20110714
  38. MOBIC [Concomitant]
     Indication: INTERVERTEBRAL DISC PROTRUSION
     Dosage: 10 MG, 1X/DAY
     Route: 048
     Dates: start: 20101104, end: 20110525
  39. LAC B [Concomitant]
     Indication: DIARRHOEA
     Dosage: 2 G, 3X/DAY
     Route: 048
     Dates: start: 20110326
  40. LOPERAMIDE HCL [Concomitant]
     Indication: DIARRHOEA
     Dosage: 1 MG, AS NEEDED
     Route: 048
  41. AMLODIPINE BESILATE [Concomitant]
     Dosage: 5 MG, 1X/DAY
     Route: 048
     Dates: start: 20110607, end: 20110607
  42. VEEN-F [Concomitant]
     Indication: VOMITING

REACTIONS (1)
  - PYREXIA [None]
